FAERS Safety Report 13849729 (Version 1)
Quarter: 2017Q3

REPORT INFORMATION
  Report Type: Spontaneous
  Country: US (occurrence: US)
  Receive Date: 20170809
  Receipt Date: 20170809
  Transmission Date: 20171127
  Serious: No
  Sender: FDA-Public Use
  Company Number: US-BAYER-2017-152065

PATIENT
  Age: 84 Year
  Sex: Female
  Weight: 61 kg

DRUGS (1)
  1. MIRALAX [Suspect]
     Active Substance: POLYETHYLENE GLYCOL 3350
     Indication: GASTROINTESTINAL DISORDER
     Dosage: 1 DF, AS NEEDED QD
     Route: 048
     Dates: start: 20170807, end: 20170807

REACTIONS (2)
  - Product solubility abnormal [None]
  - Expired product administered [Unknown]

NARRATIVE: CASE EVENT DATE: 20170807
